FAERS Safety Report 7593301-X (Version None)
Quarter: 2011Q3

REPORT INFORMATION
  Report Type: 
  Country: None (occurrence: None)
  Receive Date: 20110706
  Receipt Date: 20110622
  Transmission Date: 20111222
  Serious: Yes (Other)
  Sender: FDA-Public Use
  Company Number: TR-TYCO HEALTHCARE/MALLINCKRODT-T201101283

PATIENT
  Age: 60 Year
  Sex: Male

DRUGS (2)
  1. EXALGO [Suspect]
     Indication: PAIN
     Dosage: 128 MG, QD
     Route: 048
     Dates: start: 20110101, end: 20110101
  2. EXALGO [Suspect]
     Dosage: 32 MG, QD
     Dates: start: 20110101, end: 20110101

REACTIONS (2)
  - INCORRECT DOSE ADMINISTERED [None]
  - OVERDOSE [None]
